FAERS Safety Report 8410968-4 (Version None)
Quarter: 2012Q2

REPORT INFORMATION
  Report Type: 
  Country: None (occurrence: None)
  Receive Date: 20120529
  Receipt Date: 20060331
  Transmission Date: 20120825
  Serious: Yes (Hospitalization)
  Sender: FDA-Public Use
  Company Number: 15691-USA-06-0976

PATIENT
  Age: 74 Year
  Sex: Male

DRUGS (11)
  1. TRAZODONE HCL [Concomitant]
  2. INSPRA /USA/(EPLERENONE) [Concomitant]
  3. MEVACOR [Concomitant]
  4. GLUCOTROL XL [Concomitant]
  5. LEXAPRO [Concomitant]
  6. ISOSORBIDE (ISOSORBIDE) [Concomitant]
  7. DIGOXIN [Concomitant]
  8. LASIX [Concomitant]
  9. TOLVAPTAN (TOLVAPTAN(V4.1)) 30MG [Suspect]
     Indication: CARDIAC FAILURE CONGESTIVE
     Dosage: 30 MG, QD, ORAL
     Route: 048
     Dates: start: 20040507, end: 20060126
  10. COREG [Concomitant]
  11. CAPTOPRIL [Concomitant]

REACTIONS (31)
  - VENTRICULAR HYPOKINESIA [None]
  - DEHYDRATION [None]
  - HYPOPHAGIA [None]
  - COUGH [None]
  - BRAIN NATRIURETIC PEPTIDE INCREASED [None]
  - DILATATION VENTRICULAR [None]
  - DILATATION ATRIAL [None]
  - ANAEMIA [None]
  - OEDEMA PERIPHERAL [None]
  - PROTHROMBIN TIME PROLONGED [None]
  - WEIGHT DECREASED [None]
  - METASTASES TO KIDNEY [None]
  - RENAL FAILURE ACUTE [None]
  - DIARRHOEA [None]
  - FAECES DISCOLOURED [None]
  - AORTIC VALVE INCOMPETENCE [None]
  - FALL [None]
  - RENAL CYST [None]
  - DIASTOLIC DYSFUNCTION [None]
  - MITRAL VALVE INCOMPETENCE [None]
  - BLOOD GLUCOSE DECREASED [None]
  - INTERNATIONAL NORMALISED RATIO INCREASED [None]
  - HAEMATURIA [None]
  - PLEURAL EFFUSION [None]
  - TRICUSPID VALVE INCOMPETENCE [None]
  - OBSTRUCTIVE UROPATHY [None]
  - DECREASED ACTIVITY [None]
  - MYOGLOBIN BLOOD INCREASED [None]
  - EJECTION FRACTION DECREASED [None]
  - AORTIC STENOSIS [None]
  - REFUSAL OF TREATMENT BY RELATIVE [None]
